FAERS Safety Report 8195674-6 (Version None)
Quarter: 2012Q1

REPORT INFORMATION
  Report Type: 
  Country: None (occurrence: None)
  Receive Date: 20120308
  Receipt Date: 20120227
  Transmission Date: 20120608
  Serious: Yes (Hospitalization)
  Sender: FDA-Public Use
  Company Number: US-ELI_LILLY_AND_COMPANY-US201201000294

PATIENT
  Age: 30 Year
  Sex: Female

DRUGS (3)
  1. ZYPREXA [Suspect]
     Indication: SCHIZOPHRENIA
     Dosage: UNK UNK, UNKNOWN
     Route: 065
     Dates: start: 20090101
  2. ZYPREXA [Suspect]
     Dosage: 10 MG, UNKNOWN
     Route: 065
  3. ZYPREXA [Suspect]
     Dosage: 20 MG, QD
     Route: 065
     Dates: start: 20111102

REACTIONS (6)
  - PSYCHOTIC DISORDER [None]
  - PARANOIA [None]
  - ABNORMAL BEHAVIOUR [None]
  - INSOMNIA [None]
  - MENTAL DISORDER [None]
  - MEMORY IMPAIRMENT [None]
